FAERS Safety Report 24254228 (Version 2)
Quarter: 2024Q3

REPORT INFORMATION
  Report Type: Spontaneous
  Country: BR (occurrence: BR)
  Receive Date: 20240827
  Receipt Date: 20240913
  Transmission Date: 20241017
  Serious: Yes (Disabling, Other)
  Sender: MYLAN
  Company Number: BR-MYLANLABS-2024M1077928

PATIENT
  Age: 57 Year
  Sex: Male
  Weight: 87 kg

DRUGS (8)
  1. GABAPENTIN [Interacting]
     Active Substance: GABAPENTIN
     Indication: Neuralgia
     Dosage: 1600 MILLIGRAM, QD
     Route: 065
  2. VENLAFAXINE [Suspect]
     Active Substance: VENLAFAXINE HYDROCHLORIDE
     Indication: Neuralgia
     Dosage: 75 MILLIGRAM, AM
     Route: 065
  3. METFORMIN [Suspect]
     Active Substance: METFORMIN HYDROCHLORIDE
     Indication: Product used for unknown indication
     Dosage: 850 MILLIGRAM, TID
     Route: 065
  4. ASPIRIN [Suspect]
     Active Substance: ASPIRIN
     Indication: Product used for unknown indication
     Dosage: 100 MILLIGRAM, QD
     Route: 065
  5. ATORVASTATIN [Suspect]
     Active Substance: ATORVASTATIN
     Indication: Product used for unknown indication
     Dosage: 80 MILLIGRAM, PM
     Route: 065
  6. DOMPERIDONE [Suspect]
     Active Substance: DOMPERIDONE
     Indication: Product used for unknown indication
     Dosage: 10 MILLIGRAM, TID
     Route: 065
  7. CIPROFIBRATE [Suspect]
     Active Substance: CIPROFIBRATE
     Indication: Product used for unknown indication
     Dosage: 100 MILLIGRAM, QD
     Route: 065
  8. AMITRIPTYLINE [Interacting]
     Active Substance: AMITRIPTYLINE
     Indication: Product used for unknown indication
     Dosage: 25 MILLIGRAM, PM
     Route: 065

REACTIONS (25)
  - Diabetes mellitus [Unknown]
  - Blindness [Unknown]
  - Toe amputation [Unknown]
  - Hyperglycaemia [Unknown]
  - Obesity [Unknown]
  - Stress [Unknown]
  - Peripheral ischaemia [Unknown]
  - Foot deformity [Unknown]
  - Skin ulcer [Unknown]
  - Pain [Unknown]
  - Burning sensation [Unknown]
  - Metabolic syndrome [Unknown]
  - Non-high-density lipoprotein cholesterol decreased [Unknown]
  - Blood triglycerides increased [Unknown]
  - Proteinuria [Unknown]
  - Gastrointestinal disorder [Unknown]
  - Arteriosclerosis [Unknown]
  - Neuralgia [Unknown]
  - Hypertension [Unknown]
  - Somnolence [Unknown]
  - Dizziness [Unknown]
  - Dry mouth [Unknown]
  - Drug interaction [Unknown]
  - Off label use [Unknown]
  - Overdose [Unknown]

NARRATIVE: CASE EVENT DATE: 19970101
